FAERS Safety Report 4589815-7 (Version None)
Quarter: 2005Q1

REPORT INFORMATION
  Report Type: 
  Country: None (occurrence: None)
  Receive Date: 20050223
  Receipt Date: 20050218
  Transmission Date: 20050727
  Serious: Yes (Hospitalization)
  Sender: FDA-Public Use
  Company Number: DE-GLAXOSMITHKLINE-D0045934A

PATIENT
  Age: 61 Year
  Sex: Female

DRUGS (8)
  1. QUILONUM RETARD [Suspect]
     Dosage: 2TAB PER DAY
     Route: 065
     Dates: start: 20020615
  2. SEROXAT [Suspect]
     Dosage: 40MG PER DAY
     Route: 065
     Dates: start: 20020205
  3. TRUXAL [Suspect]
     Dosage: 45MG PER DAY
     Route: 065
     Dates: start: 20040323
  4. PLAVIX [Suspect]
     Dosage: 75MG PER DAY
     Route: 065
     Dates: start: 20040909
  5. DOGMATIL [Concomitant]
     Dosage: 400MG PER DAY
     Route: 065
     Dates: start: 20040215
  6. SORTIS [Concomitant]
     Dosage: 20MG PER DAY
     Route: 065
     Dates: start: 20020301
  7. RANITIDINE HCL [Concomitant]
     Dosage: 300MG PER DAY
     Route: 065
     Dates: start: 20040315
  8. DEHYDRO SANOL TRI [Concomitant]
     Dosage: 1CAP PER DAY
     Route: 065
     Dates: start: 20040322

REACTIONS (5)
  - ASTHENIA [None]
  - CEREBRAL INFARCTION [None]
  - HYPOAESTHESIA [None]
  - MUSCULAR WEAKNESS [None]
  - SPEECH DISORDER [None]
